FAERS Safety Report 6286727-8 (Version None)
Quarter: 2009Q3

REPORT INFORMATION
  Report Type: 
  Country: None (occurrence: None)
  Receive Date: 20090728
  Receipt Date: 20090717
  Transmission Date: 20100115
  Serious: Yes (Hospitalization)
  Sender: FDA-Public Use
  Company Number: FR-BAXTER-2009BH011748

PATIENT
  Age: 62 Year
  Sex: Female

DRUGS (2)
  1. TISSUCOL/TISSEEL KIT STIM3 [Suspect]
     Indication: SURGERY
     Route: 065
     Dates: start: 20090108
  2. TISSUCOL/TISSEEL KIT STIM3 [Suspect]
     Indication: PROSTHESIS IMPLANTATION
     Route: 065
     Dates: start: 20090108

REACTIONS (1)
  - SURGICAL PROCEDURE REPEATED [None]
